FAERS Safety Report 5859074-3 (Version None)
Quarter: 2008Q3

REPORT INFORMATION
  Report Type: 
  Country: None (occurrence: None)
  Receive Date: 20080827
  Receipt Date: 20080818
  Transmission Date: 20090109
  Serious: Yes (Hospitalization)
  Sender: FDA-Public Use
  Company Number: GXKR2008GB07790

PATIENT
  Age: 25 Year
  Sex: Female

DRUGS (4)
  1. LAMOTRIGINE (NGX) [Interacting]
     Dosage: 125 MG, BID
  2. TEGRETOL [Suspect]
     Dosage: 600 MG, BID
  3. PHENYTOIN [Interacting]
     Indication: GRAND MAL CONVULSION
     Dosage: 100 MG, TID
     Route: 048
     Dates: start: 20080803, end: 20080807
  4. ZONISAMIDE [Interacting]
     Dosage: 150 MG, BID

REACTIONS (4)
  - CONVULSION [None]
  - DRUG INTERACTION [None]
  - DRUG LEVEL BELOW THERAPEUTIC [None]
  - POSTICTAL STATE [None]
